FAERS Safety Report 22530146 (Version 3)
Quarter: 2023Q2

REPORT INFORMATION
  Report Type: Spontaneous
  Country: ES (occurrence: ES)
  Receive Date: 20230607
  Receipt Date: 20230626
  Transmission Date: 20230722
  Serious: Yes (Hospitalization)
  Sender: FDA-Public Use
  Company Number: ES-ABBVIE-4708024

PATIENT
  Age: 76 Year
  Sex: Male

DRUGS (9)
  1. QUETIAPINE [Suspect]
     Active Substance: QUETIAPINE
     Indication: Behaviour disorder
     Dosage: 50 MG, QD (FROM APR 2023, FORM STRENGTH: 25 MG/FREQUENCY TEXT: TWO TABLETS AT NOON)
     Route: 048
     Dates: end: 202304
  2. QUETIAPINE [Suspect]
     Active Substance: QUETIAPINE
     Dosage: 75 MG (HALF DAY, FORM STRENGTH: 25 MG/FREQUENCY TEXT: TWO TABLET AT NIGHT)
     Route: 048
     Dates: start: 202304, end: 202304
  3. QUETIAPINE [Suspect]
     Active Substance: QUETIAPINE
     Dosage: UNK, QD (FORM STRENGTH: 25 MG)
     Route: 048
     Dates: start: 202304, end: 202304
  4. QUETIAPINE [Suspect]
     Active Substance: QUETIAPINE
     Dosage: 100 MG (FORM STRENGTH: 25- MG/DOSE INCREASED/FREQUENCY TEXT: 100MG AT LUNCH AND DINNER)
     Route: 048
     Dates: start: 202304
  5. RIVOTRIL [Suspect]
     Active Substance: CLONAZEPAM
     Indication: Behaviour disorder
     Dosage: UNK, QD (FROM APR 2023)
     Route: 048
  6. CARBIDOPA\LEVODOPA [Suspect]
     Active Substance: CARBIDOPA\LEVODOPA
     Indication: Parkinson^s disease
     Dosage: UNK (ROUTE: PERCUTANEOUS J TUBE)
     Route: 065
     Dates: start: 20220727, end: 202304
  7. CARBIDOPA\LEVODOPA [Suspect]
     Active Substance: CARBIDOPA\LEVODOPA
     Dosage: CONTINUOUS DOSE IS DECREASED WITH 0.1ML/H (ROUTE: PERCUTANEOUS J-TUBE)
     Route: 065
     Dates: start: 202304, end: 202306
  8. CARBIDOPA\LEVODOPA [Suspect]
     Active Substance: CARBIDOPA\LEVODOPA
     Dosage: CONTINUOUS INFUSION PUMP DOSE MODIFIED (ROUTE: ERCUTANEOUS J TUBE)
     Route: 065
     Dates: start: 202306
  9. APOMORPHINE HYDROCHLORIDE [Concomitant]
     Active Substance: APOMORPHINE HYDROCHLORIDE
     Indication: Product used for unknown indication
     Dosage: UNK
     Route: 065

REACTIONS (24)
  - Renal failure [Recovered/Resolved]
  - Decubitus ulcer [Unknown]
  - Condition aggravated [Unknown]
  - Condition aggravated [Unknown]
  - Parkinson^s disease [Not Recovered/Not Resolved]
  - Unevaluable event [Unknown]
  - Hallucination [Not Recovered/Not Resolved]
  - Dyspnoea [Recovered/Resolved]
  - Agitation [Recovered/Resolved]
  - Emotional distress [Unknown]
  - Infrequent bowel movements [Unknown]
  - Dyskinesia [Recovering/Resolving]
  - Urinary tract infection [Recovered/Resolved]
  - Restlessness [Unknown]
  - Urinary tract infection [Recovered/Resolved]
  - Hypophagia [Unknown]
  - Pyrexia [Unknown]
  - Unevaluable event [Unknown]
  - Behaviour disorder [Not Recovered/Not Resolved]
  - Device dislocation [Unknown]
  - Device dislocation [Not Recovered/Not Resolved]
  - Device physical property issue [Unknown]
  - Incorrect route of product administration [Unknown]
  - Off label use [Unknown]

NARRATIVE: CASE EVENT DATE: 20230101
